FAERS Safety Report 6094175-9 (Version None)
Quarter: 2009Q1

REPORT INFORMATION
  Report Type: 
  Country: None (occurrence: None)
  Receive Date: 20090226
  Receipt Date: 20090224
  Transmission Date: 20090719
  Serious: Yes (Hospitalization)
  Sender: FDA-Public Use
  Company Number: DE-BRISTOL-MYERS SQUIBB COMPANY-14520977

PATIENT
  Age: 75 Year
  Sex: Female

DRUGS (1)
  1. ABILIFY [Suspect]
     Dosage: INITIAL DOSE: 5 MG;DOSE INC TO 15MG UNK DATE;EXP ACUTE PSYCOSIS.SO 30MG FROM JAN2009 - ONGOING
     Route: 048
     Dates: start: 20081001

REACTIONS (2)
  - ACUTE PSYCHOSIS [None]
  - BLOOD PRESSURE INCREASED [None]
